FAERS Safety Report 18171069 (Version 2)
Quarter: 2021Q1

REPORT INFORMATION
  Report Type: Report from Study
  Country: US (occurrence: US)
  Receive Date: 20200819
  Receipt Date: 20210226
  Transmission Date: 20210419
  Serious: Yes (Hospitalization, Other)
  Sender: FDA-Public Use
  Company Number: US-TEVA-2020-US-1816682

PATIENT
  Age: 59 Year
  Sex: Male
  Weight: 80 kg

DRUGS (27)
  1. ASP2215 [Suspect]
     Active Substance: GILTERITINIB
     Indication: ACUTE MYELOID LEUKAEMIA
     Route: 048
     Dates: start: 20160927, end: 20161107
  2. LASIX [Concomitant]
     Active Substance: FUROSEMIDE
     Dates: start: 20160928, end: 20161002
  3. DESYREL [Concomitant]
     Active Substance: TRAZODONE HYDROCHLORIDE
     Dates: start: 20161006, end: 20161006
  4. MIRALAX [Concomitant]
     Active Substance: POLYETHYLENE GLYCOL 3350
     Dates: start: 20160928, end: 20161102
  5. CYTARABINE. [Suspect]
     Active Substance: CYTARABINE
     Indication: ACUTE MYELOID LEUKAEMIA
     Route: 065
  6. ZOFRAN [Concomitant]
     Active Substance: ONDANSETRON HYDROCHLORIDE
     Dates: start: 20160927, end: 20161004
  7. DECADRON [Concomitant]
     Active Substance: DEXAMETHASONE
     Dates: start: 20160927, end: 20160929
  8. AVELOX [Concomitant]
     Active Substance: MOXIFLOXACIN HYDROCHLORIDE
     Dates: start: 20160927, end: 20161008
  9. ERAXIS [Concomitant]
     Active Substance: ANIDULAFUNGIN
     Dates: start: 20160929, end: 20161026
  10. CAPHOSOL [Concomitant]
     Active Substance: CALCIUM CHLORIDE\SODIUM CHLORIDE\SODIUM PHOSPHATE, DIBASIC, ANHYDROUS\SODIUM PHOSPHATE, MONOBASIC, ANHYDROUS
     Dates: start: 20161007, end: 20161102
  11. ROXICODONE [Concomitant]
     Active Substance: OXYCODONE HYDROCHLORIDE
     Dates: start: 20160926, end: 20161102
  12. OMNIPAQUE [Concomitant]
     Active Substance: IOHEXOL
     Dates: start: 20160927, end: 20160927
  13. XANAX [Concomitant]
     Active Substance: ALPRAZOLAM
     Dates: start: 20160926, end: 20161102
  14. CLEOCIN T [Concomitant]
     Active Substance: CLINDAMYCIN PHOSPHATE
     Dates: start: 20161004, end: 20161102
  15. ATIVAN [Concomitant]
     Active Substance: LORAZEPAM
     Dates: start: 20160927, end: 20161102
  16. DAUNORUBICIN [Suspect]
     Active Substance: DAUNORUBICIN
     Indication: ACUTE MYELOID LEUKAEMIA
     Route: 065
  17. IDARUBICIN [Suspect]
     Active Substance: IDARUBICIN
     Indication: ACUTE MYELOID LEUKAEMIA
     Route: 065
     Dates: start: 20160927
  18. PROTONIX [Concomitant]
     Active Substance: PANTOPRAZOLE SODIUM
  19. HEPARIN [Concomitant]
     Active Substance: HEPARIN SODIUM
     Dates: start: 20160927, end: 20161102
  20. COMPAZINE [Concomitant]
     Active Substance: PROCHLORPERAZINE MALEATE
     Dates: start: 20160927, end: 20161102
  21. SENNA PLUS [Concomitant]
     Active Substance: DOCUSATE SODIUM\SENNOSIDES\SENNOSIDES A AND B
     Dates: start: 20160928, end: 20161102
  22. ZYLOPRIM [Concomitant]
     Active Substance: ALLOPURINOL
     Dates: start: 20160928, end: 20161002
  23. SODIUM CHLORIDE. [Concomitant]
     Active Substance: SODIUM CHLORIDE
  24. ZOVJRAX [Concomitant]
     Dates: start: 20160927, end: 20161102
  25. INFLUENZA VACCINE [Concomitant]
     Active Substance: INFLUENZA VIRUS VACCINE
     Dates: start: 20160929, end: 20160930
  26. OXYCONTIN [Concomitant]
     Active Substance: OXYCODONE HYDROCHLORIDE
     Dates: start: 20160930, end: 20161001
  27. MELATONIN [Concomitant]
     Active Substance: MELATONIN
     Dates: start: 20161006, end: 20161006

REACTIONS (1)
  - Febrile neutropenia [Recovered/Resolved with Sequelae]

NARRATIVE: CASE EVENT DATE: 20161008
